FAERS Safety Report 18639555 (Version 1)
Quarter: 2020Q4

REPORT INFORMATION
  Report Type: Spontaneous
  Country: EG (occurrence: EG)
  Receive Date: 20201219
  Receipt Date: 20201219
  Transmission Date: 20210114
  Serious: Yes (Death)
  Sender: FDA-Public Use
  Company Number: NVSC2020EG336713

PATIENT
  Sex: Male

DRUGS (2)
  1. AFINITOR [Suspect]
     Active Substance: EVEROLIMUS
     Indication: RENAL CANCER
     Dosage: 2 DF, QD (STARTED FROM FEB OR MAR 2020)
     Route: 065
  2. AFINITOR [Suspect]
     Active Substance: EVEROLIMUS
     Dosage: 1 DF, QD (THEN HE TOOK 1 TAB DAY BY DAY)
     Route: 065
     Dates: end: 202007

REACTIONS (3)
  - Skin burning sensation [Fatal]
  - Immunodeficiency [Fatal]
  - Rash [Fatal]
